FAERS Safety Report 16945446 (Version 1)
Quarter: 2019Q4

REPORT INFORMATION
  Report Type: Spontaneous
  Country: US (occurrence: US)
  Receive Date: 20191021
  Receipt Date: 20191021
  Transmission Date: 20200122
  Serious: Yes (Hospitalization)
  Sender: FDA-Public Use
  Company Number: None

PATIENT
  Age: 76 Year
  Sex: Female

DRUGS (7)
  1. ESTRADIOL. [Concomitant]
     Active Substance: ESTRADIOL
  2. ROPINIROLE. [Concomitant]
     Active Substance: ROPINIROLE
  3. CLINDAMYCIN. [Concomitant]
     Active Substance: CLINDAMYCIN
  4. SERTRALINE [Concomitant]
     Active Substance: SERTRALINE HYDROCHLORIDE
  5. BOTOX [Suspect]
     Active Substance: ONABOTULINUMTOXINA
     Indication: BLEPHAROSPASM
     Dosage: ?          OTHER FREQUENCY:EVERY 3 MONTHS;?
     Route: 030
     Dates: start: 20171010
  6. BIOTIN [Concomitant]
     Active Substance: BIOTIN
  7. AMLODIPINE [Concomitant]
     Active Substance: AMLODIPINE BESYLATE

REACTIONS (1)
  - Spinal operation [None]

NARRATIVE: CASE EVENT DATE: 20190901
